FAERS Safety Report 4958609-2 (Version None)
Quarter: 2006Q1

REPORT INFORMATION
  Report Type: 
  Country: None (occurrence: None)
  Receive Date: 20060127
  Receipt Date: 20050113
  Transmission Date: 20060701
  Serious: Yes (Hospitalization)
  Sender: FDA-Public Use
  Company Number: 05-01-0057

PATIENT
  Age: 42 Year
  Sex: Male
  Weight: 80.7403 kg

DRUGS (1)
  1. CLOZAPINE [Suspect]
     Indication: SCHIZOPHRENIA
     Dosage: 900MG QD, ORAL
     Route: 048
     Dates: start: 20041109, end: 20041223

REACTIONS (3)
  - ASTHENIA [None]
  - DROOLING [None]
  - DYSKINESIA [None]
